FAERS Safety Report 8817089 (Version 1)
Quarter: 2012Q4

REPORT INFORMATION
  Report Type: Spontaneous
  Country: US (occurrence: None)
  Receive Date: 20121003
  Receipt Date: 20121003
  Transmission Date: 20130627
  Serious: Yes (Other)
  Sender: FDA-Public Use
  Company Number: None

PATIENT
  Age: 50 Year
  Sex: Female
  Weight: 86.18 kg

DRUGS (2)
  1. MIRAPEX [Suspect]
     Indication: PARKINSON^S DISEASE
     Dosage: low dose 3 times daily po
     Route: 048
     Dates: start: 20070303, end: 20080707
  2. DOPAMINE AGONISTS [Concomitant]

REACTIONS (1)
  - Hypersexuality [None]
